FAERS Safety Report 11595043 (Version 1)
Quarter: 2015Q4

REPORT INFORMATION
  Report Type: Report from Study
  Country: CA (occurrence: CA)
  Receive Date: 20151005
  Receipt Date: 20151005
  Transmission Date: 20160304
  Serious: Yes (Hospitalization, Other)
  Sender: FDA-Public Use
  Company Number: CA-BRISTOL-MYERS SQUIBB COMPANY-BMS-2015-057323

PATIENT
  Sex: Male

DRUGS (2)
  1. ABATACEPT [Suspect]
     Active Substance: ABATACEPT
     Indication: RHEUMATOID ARTHRITIS
     Dosage: 750 MG, UNK
     Route: 042
     Dates: start: 20150805, end: 2015
  2. ABATACEPT [Suspect]
     Active Substance: ABATACEPT
     Indication: RHEUMATOID ARTHRITIS
     Dosage: 125 MG, QWK
     Route: 058
     Dates: start: 20150805, end: 2015

REACTIONS (9)
  - Headache [Unknown]
  - Respiratory arrest [Unknown]
  - Nasal congestion [Unknown]
  - Muscle spasms [Unknown]
  - Dizziness [Unknown]
  - Cough [Unknown]
  - Lethargy [Unknown]
  - Back pain [Unknown]
  - Nausea [Unknown]
